FAERS Safety Report 5817298-5 (Version None)
Quarter: 2008Q3

REPORT INFORMATION
  Report Type: 
  Country: None (occurrence: None)
  Receive Date: 20080722
  Receipt Date: 20080708
  Transmission Date: 20090109
  Serious: Yes (Death)
  Sender: FDA-Public Use
  Company Number: B0529694A

PATIENT
  Age: 34 Year
  Sex: Female

DRUGS (2)
  1. TYVERB [Suspect]
     Route: 048
  2. CAPECITABINE [Suspect]
     Route: 065

REACTIONS (1)
  - DEATH [None]
